FAERS Safety Report 10855173 (Version 1)
Quarter: 2015Q1

REPORT INFORMATION
  Report Type: Spontaneous
  Country: US (occurrence: None)
  Receive Date: 20150218
  Receipt Date: 20150218
  Transmission Date: 20150721
  Serious: Yes (Disabling)
  Sender: FDA-Public Use
  Company Number: None

PATIENT
  Age: 67 Year
  Sex: Female
  Weight: 65.77 kg

DRUGS (1)
  1. MYRBETRIQ [Suspect]
     Active Substance: MIRABEGRON
     Indication: URGE INCONTINENCE
     Route: 048

REACTIONS (5)
  - Pain [None]
  - Discomfort [None]
  - Headache [None]
  - Sinusitis [None]
  - Nasopharyngitis [None]

NARRATIVE: CASE EVENT DATE: 20150201
